FAERS Safety Report 6659592-4 (Version None)
Quarter: 2010Q1

REPORT INFORMATION
  Report Type: 
  Country: None (occurrence: None)
  Receive Date: 20100330
  Receipt Date: 20100322
  Transmission Date: 20100710
  Serious: Yes (Hospitalization)
  Sender: FDA-Public Use
  Company Number: DE-WYE-G05801910

PATIENT
  Sex: Female

DRUGS (1)
  1. TREVILOR RETARD [Suspect]
     Dosage: 225 MG PER DAY FROM UNKNOWN DATE
     Route: 048

REACTIONS (2)
  - CHEST DISCOMFORT [None]
  - TORSADE DE POINTES [None]
